FAERS Safety Report 9981713 (Version 1)
Quarter: 2014Q1

REPORT INFORMATION
  Report Type: Spontaneous
  Country: US (occurrence: None)
  Receive Date: 20140306
  Receipt Date: 20140306
  Transmission Date: 20141002
  Serious: No
  Sender: FDA-Public Use
  Company Number: None

PATIENT
  Age: 54 Year
  Sex: Female

DRUGS (3)
  1. TECFIDERA [Suspect]
     Indication: MULTIPLE SCLEROSIS
     Dosage: 1 CAPSULE BID ORAL
     Route: 048
     Dates: start: 20140107, end: 20140305
  2. MOTRIN [Concomitant]
  3. ESTROVEN [Concomitant]

REACTIONS (2)
  - Paraesthesia [None]
  - Dyskinesia [None]
